FAERS Safety Report 10158524 (Version 2)
Quarter: 2014Q3

REPORT INFORMATION
  Report Type: Spontaneous
  Country: US (occurrence: US)
  Receive Date: 20140507
  Receipt Date: 20140703
  Transmission Date: 20150326
  Serious: No
  Sender: FDA-Public Use
  Company Number: US-009507513-1404USA015684

PATIENT
  Age: 32 Year
  Sex: Female
  Weight: 175 kg

DRUGS (1)
  1. NEXPLANON [Suspect]
     Active Substance: ETONOGESTREL
     Indication: CONTRACEPTION
     Dosage: 1 SINGLE ROD
     Route: 023
     Dates: start: 20140307

REACTIONS (2)
  - Ephelides [Not Recovered/Not Resolved]
  - Chloasma [Not Recovered/Not Resolved]

NARRATIVE: CASE EVENT DATE: 20140328
